FAERS Safety Report 6771595-8 (Version None)
Quarter: 2010Q2

REPORT INFORMATION
  Report Type: 
  Country: None (occurrence: None)
  Receive Date: 20100616
  Receipt Date: 20100603
  Transmission Date: 20101027
  Serious: Yes (Hospitalization)
  Sender: FDA-Public Use
  Company Number: PHHY2010AR21388

PATIENT
  Sex: Male

DRUGS (1)
  1. DIOVAN [Suspect]
     Dosage: 1 TABLET (80 MG) DAILY
     Dates: start: 20080401

REACTIONS (3)
  - BEDRIDDEN [None]
  - CORONARY ARTERY DISEASE [None]
  - INFARCTION [None]
